FAERS Safety Report 13467045 (Version 7)
Quarter: 2018Q1

REPORT INFORMATION
  Report Type: Spontaneous
  Country: US (occurrence: US)
  Receive Date: 20170421
  Receipt Date: 20180125
  Transmission Date: 20180508
  Serious: Yes (Life-Threatening, Hospitalization, Other)
  Sender: FDA-Public Use
  Company Number: US-PFIZER INC-2017169323

PATIENT
  Age: 63 Year
  Sex: Female

DRUGS (4)
  1. METOPROLOL TARTRATE. [Suspect]
     Active Substance: METOPROLOL TARTRATE
     Indication: ATRIAL FIBRILLATION
     Dosage: UNK
     Route: 042
  2. METOPROLOL TARTRATE. [Interacting]
     Active Substance: METOPROLOL TARTRATE
     Dosage: UNK
     Route: 048
  3. FEXOFENADINE W/PSEUDOEPHEDRINE [Interacting]
     Active Substance: FEXOFENADINE\PSEUDOEPHEDRINE
     Indication: SEASONAL ALLERGY
     Dosage: UNK, DAILY
  4. FEXOFENADINE W/PSEUDOEPHEDRINE [Interacting]
     Active Substance: FEXOFENADINE\PSEUDOEPHEDRINE
     Indication: NASAL CONGESTION

REACTIONS (3)
  - Drug interaction [Unknown]
  - Acute myocardial infarction [Unknown]
  - Arteriospasm coronary [Unknown]
